FAERS Safety Report 7608344-7 (Version None)
Quarter: 2011Q3

REPORT INFORMATION
  Report Type: 
  Country: None (occurrence: None)
  Receive Date: 20110714
  Receipt Date: 20110629
  Transmission Date: 20111222
  Serious: No
  Sender: FDA-Public Use
  Company Number: US-B.I. PHARMACEUTICALS,INC./RIDGEFIELD-2011-BP-12957BP

PATIENT
  Sex: Female
  Weight: 54.43 kg

DRUGS (14)
  1. FLAX SEED OIL [Concomitant]
     Indication: PROPHYLAXIS
     Dosage: 1000 MG
     Dates: start: 20090622
  2. ASCORBIC ACID [Concomitant]
     Indication: PROPHYLAXIS
     Dosage: 500 MG
  3. VITAMIN D [Concomitant]
     Indication: PROPHYLAXIS
     Dosage: 2000 RT
  4. PRADAXA [Suspect]
     Indication: TACHYCARDIA
     Dosage: 150 MG
     Route: 048
     Dates: start: 20110508
  5. PRADAXA [Suspect]
     Dosage: 150 MG
     Dates: start: 20110513
  6. ASPIRIN [Concomitant]
     Dosage: 81 MG
  7. DIGOXIN [Concomitant]
  8. CALCIUM + D [Concomitant]
  9. HYDROCHLOROTHIAZIDE [Concomitant]
     Indication: HYPERTENSION
     Dosage: 12.5 MG
     Dates: start: 20090622
  10. AVAPRO [Concomitant]
     Indication: HYPERTENSION
     Dates: start: 20090622
  11. IBUPROFEN [Concomitant]
     Indication: ARTHRITIS
     Dosage: 800 MG
  12. FOLIC ACID [Concomitant]
     Indication: PROPHYLAXIS
     Dates: start: 20090622
  13. PRADAXA [Suspect]
     Indication: ATRIAL FIBRILLATION
     Dosage: 300 MG
     Route: 048
     Dates: start: 20110218, end: 20110313
  14. FISH OIL [Concomitant]
     Indication: PROPHYLAXIS
     Dosage: 1200 MG
     Dates: start: 20090622

REACTIONS (11)
  - CHEST DISCOMFORT [None]
  - ARTHRALGIA [None]
  - GROIN PAIN [None]
  - HYPERHIDROSIS [None]
  - CHEST PAIN [None]
  - DYSPEPSIA [None]
  - PAIN IN EXTREMITY [None]
  - CHILLS [None]
  - MUSCLE SPASMS [None]
  - DYSPNOEA [None]
  - DIZZINESS [None]
